FAERS Safety Report 26002857 (Version 1)
Quarter: 2025Q4

REPORT INFORMATION
  Report Type: Spontaneous
  Country: JP (occurrence: JP)
  Receive Date: 20251106
  Receipt Date: 20251106
  Transmission Date: 20260118
  Serious: Yes (Death)
  Sender: BOEHRINGER INGELHEIM
  Company Number: JP-NBI-2025-BI-105638

PATIENT
  Age: 7 Decade
  Sex: Male

DRUGS (1)
  1. OFEV [Suspect]
     Active Substance: NINTEDANIB
     Indication: Idiopathic pulmonary fibrosis

REACTIONS (2)
  - Pneumothorax [Fatal]
  - Pulmonary hypertension [Fatal]
